FAERS Safety Report 21391727 (Version 1)
Quarter: 2022Q3

REPORT INFORMATION
  Report Type: Spontaneous
  Country: US (occurrence: US)
  Receive Date: 20220929
  Receipt Date: 20220929
  Transmission Date: 20221026
  Serious: Yes (Other)
  Sender: FDA-Public Use
  Company Number: US-BRISTOL-MYERS SQUIBB COMPANY-2022-113714

PATIENT
  Age: 86 Year
  Sex: Male
  Weight: 86 kg

DRUGS (1)
  1. REVLIMID [Suspect]
     Active Substance: LENALIDOMIDE
     Indication: Diffuse large B-cell lymphoma
     Dosage: 3W, 1W OFF
     Route: 048

REACTIONS (2)
  - Malignant neoplasm progression [Unknown]
  - Off label use [Unknown]
